FAERS Safety Report 13601121 (Version 5)
Quarter: 2018Q1

REPORT INFORMATION
  Report Type: Spontaneous
  Country: US (occurrence: US)
  Receive Date: 20170601
  Receipt Date: 20180207
  Transmission Date: 20180508
  Serious: Yes (Other)
  Sender: FDA-Public Use
  Company Number: PHEH2017US016507

PATIENT
  Sex: Female

DRUGS (2)
  1. ZOFRAN [Suspect]
     Active Substance: ONDANSETRON HYDROCHLORIDE
     Indication: PRODUCT USED FOR UNKNOWN INDICATION
     Route: 065
  2. ZOFRAN [Suspect]
     Active Substance: ONDANSETRON HYDROCHLORIDE
     Indication: PRODUCT USED FOR UNKNOWN INDICATION
     Route: 048

REACTIONS (13)
  - Intervertebral disc protrusion [Unknown]
  - Maternal exposure during pregnancy [Unknown]
  - Pharyngitis streptococcal [Unknown]
  - Product use issue [Unknown]
  - Ear pain [Unknown]
  - Pelvic inflammatory disease [Unknown]
  - Pain [Unknown]
  - Injury [Unknown]
  - Gastroenteritis [Unknown]
  - Depression [Unknown]
  - Rectal haemorrhage [Unknown]
  - Emotional distress [Unknown]
  - Back pain [Unknown]
